FAERS Safety Report 8622241-X (Version None)
Quarter: 2012Q3

REPORT INFORMATION
  Report Type: 
  Country: None (occurrence: None)
  Receive Date: 20120827
  Receipt Date: 20120817
  Transmission Date: 20120928
  Serious: Yes (Hospitalization)
  Sender: FDA-Public Use
  Company Number: BR-AMGEN-BRASP2012053286

PATIENT
  Age: 51 Year
  Sex: Female
  Weight: 50 kg

DRUGS (4)
  1. ENBREL [Suspect]
     Indication: RHEUMATOID ARTHRITIS
     Dosage: 50 MG, WEEKLY
     Route: 058
     Dates: end: 20120601
  2. ALENDRONATE SODIUM [Concomitant]
     Dosage: UNK
  3. INSULIN HUMAN [Concomitant]
     Dosage: 20 IU, PER DAY
  4. ARAVA [Concomitant]
     Dosage: UNK

REACTIONS (5)
  - INFLUENZA [None]
  - PYREXIA [None]
  - ANAEMIA [None]
  - VIRAL INFECTION [None]
  - DIABETIC FOOT [None]
